FAERS Safety Report 12121242 (Version 2)
Quarter: 2016Q1

REPORT INFORMATION
  Report Type: Spontaneous
  Country: US (occurrence: US)
  Receive Date: 20160226
  Receipt Date: 20160307
  Transmission Date: 20160526
  Serious: Yes (Death)
  Sender: FDA-Public Use
  Company Number: US-TEVA-638775USA

PATIENT
  Age: 78 Year
  Sex: Male

DRUGS (1)
  1. TEGAFUR [Suspect]
     Active Substance: TEGAFUR
     Indication: BLADDER CANCER
     Route: 048

REACTIONS (2)
  - Toxicity to various agents [Fatal]
  - Leukoencephalopathy [Fatal]
